FAERS Safety Report 21376071 (Version 1)
Quarter: 2022Q3

REPORT INFORMATION
  Report Type: Spontaneous
  Country: BR (occurrence: BR)
  Receive Date: 20220926
  Receipt Date: 20220926
  Transmission Date: 20221027
  Serious: Yes (Hospitalization)
  Sender: FDA-Public Use
  Company Number: None

PATIENT
  Age: 67 Year
  Sex: Female
  Weight: 68 kg

DRUGS (5)
  1. RINVOQ [Suspect]
     Active Substance: UPADACITINIB
     Indication: Rheumatoid arthritis
     Dosage: 1 TABLET
     Route: 048
     Dates: start: 20220116, end: 20220817
  2. DIOVAN [Concomitant]
     Active Substance: VALSARTAN
     Indication: Hypertension
  3. ZETIA [Concomitant]
     Active Substance: EZETIMIBE
     Indication: Product used for unknown indication
  4. LIVALO [Concomitant]
     Active Substance: PITAVASTATIN CALCIUM
     Indication: Product used for unknown indication
     Dosage: 2 MILLIGRAM
  5. SYNTHROID [Concomitant]
     Active Substance: LEVOTHYROXINE SODIUM
     Indication: Thyroid disorder

REACTIONS (10)
  - COVID-19 [Recovered/Resolved]
  - Influenza like illness [Not Recovered/Not Resolved]
  - Malaise [Not Recovered/Not Resolved]
  - Fall [Recovering/Resolving]
  - Pain in extremity [Recovering/Resolving]
  - Vaginal infection [Recovered/Resolved]
  - Periodontitis [Recovered/Resolved]
  - Influenza [Recovering/Resolving]
  - Oxygen saturation decreased [Unknown]
  - Bronchitis [Unknown]

NARRATIVE: CASE EVENT DATE: 20220415
